FAERS Safety Report 5042051-2 (Version None)
Quarter: 2006Q2

REPORT INFORMATION
  Report Type: 
  Country: None (occurrence: None)
  Receive Date: 20060627
  Receipt Date: 20060614
  Transmission Date: 20061013
  Serious: Yes (Hospitalization)
  Sender: FDA-Public Use
  Company Number: 146206USA

PATIENT
  Age: 58 Year
  Sex: Male

DRUGS (6)
  1. FLUOROURACIL [Suspect]
     Indication: GASTROOESOPHAGEAL CANCER
     Dates: start: 20051117, end: 20051121
  2. FLUOROURACIL [Suspect]
     Indication: METASTATIC NEOPLASM
     Dates: start: 20051117, end: 20051121
  3. CISPLATIN [Suspect]
     Dates: start: 20051117, end: 20051118
  4. COMPAZINE [Concomitant]
  5. NIFEREX [Concomitant]
  6. ZOFRAN [Concomitant]

REACTIONS (5)
  - BOWEL SOUNDS ABNORMAL [None]
  - COGNITIVE DISORDER [None]
  - CONSTIPATION [None]
  - DEHYDRATION [None]
  - INAPPROPRIATE ANTIDIURETIC HORMONE SECRETION [None]
